FAERS Safety Report 9447562 (Version 3)
Quarter: 2013Q3

REPORT INFORMATION
  Report Type: Spontaneous
  Country: US (occurrence: US)
  Receive Date: 20130808
  Receipt Date: 20130918
  Transmission Date: 20140515
  Serious: Yes (Death)
  Sender: FDA-Public Use
  Company Number: US-JNJFOC-20130719097

PATIENT
  Age: 15 Month
  Sex: Male

DRUGS (1)
  1. UNSPECIFIED FENTANYL PATCH [Suspect]
     Indication: PRODUCT USED FOR UNKNOWN INDICATION
     Route: 048

REACTIONS (5)
  - Accidental exposure to product [Fatal]
  - Pulmonary oedema [Fatal]
  - Toxicity to various agents [Fatal]
  - Vomiting [Unknown]
  - Unresponsive to stimuli [Unknown]
